FAERS Safety Report 8173809-9 (Version None)
Quarter: 2012Q1

REPORT INFORMATION
  Report Type: 
  Country: None (occurrence: None)
  Receive Date: 20120224
  Receipt Date: 20120213
  Transmission Date: 20120608
  Serious: Yes (Other)
  Sender: FDA-Public Use
  Company Number: 2012P1004980

PATIENT
  Age: 12 Year
  Sex: Female

DRUGS (3)
  1. ONCASPAR [Suspect]
     Indication: ACUTE LYMPHOCYTIC LEUKAEMIA
     Dosage: 2500 UNITS/M2; BIWEEKLY;IV
     Route: 042
  2. DEXAMETHASONE [Suspect]
     Indication: ACUTE LYMPHOCYTIC LEUKAEMIA
     Dosage: 6 MG/M2;QD;PO
     Route: 048
  3. CHEMOTHERAPY OF DCOG [Concomitant]

REACTIONS (4)
  - HYPERTRIGLYCERIDAEMIA [None]
  - TOXICITY TO VARIOUS AGENTS [None]
  - DEPRESSION [None]
  - BLOOD CHOLESTEROL INCREASED [None]
